FAERS Safety Report 18932628 (Version 10)
Quarter: 2022Q4

REPORT INFORMATION
  Report Type: Spontaneous
  Country: CA (occurrence: CA)
  Receive Date: 20210224
  Receipt Date: 20221027
  Transmission Date: 20230113
  Serious: Yes (Hospitalization, Other)
  Sender: FDA-Public Use
  Company Number: CA-CELLTRION INC.-2021CA002346

PATIENT

DRUGS (13)
  1. INFLECTRA [Suspect]
     Active Substance: INFLIXIMAB-DYYB
     Indication: Colitis ulcerative
     Dosage: 5 MG/KG, AT 0, 2, 6, THEN EVERY 8 WEEKS (WEEK 0)
     Route: 042
     Dates: start: 20201219, end: 20201219
  2. INFLECTRA [Suspect]
     Active Substance: INFLIXIMAB-DYYB
     Dosage: 5 MG/KG, AT 0, 2, 6, THEN EVERY 8 WEEKS (WEEK 2)
     Route: 042
     Dates: start: 20210104
  3. INFLECTRA [Suspect]
     Active Substance: INFLIXIMAB-DYYB
     Dosage: 5 MG/KG, 6 WEEKS THEN EVERY 8 WEEKS
     Route: 042
     Dates: start: 20210215
  4. INFLECTRA [Suspect]
     Active Substance: INFLIXIMAB-DYYB
     Dosage: 5 MG/KG, 6 WEEKS THEN EVERY 8 WEEKS
     Route: 042
     Dates: start: 20210412
  5. INFLECTRA [Suspect]
     Active Substance: INFLIXIMAB-DYYB
     Dosage: 5 MG/KG, 6 WEEKS THEN EVERY 8 WEEKS
     Route: 042
     Dates: start: 20210614
  6. INFLECTRA [Suspect]
     Active Substance: INFLIXIMAB-DYYB
     Dosage: 500 MG (5MG/KG) 6 WEEKS THEN EVERY 8 WEEKS
     Route: 042
     Dates: start: 20210820
  7. INFLECTRA [Suspect]
     Active Substance: INFLIXIMAB-DYYB
     Dosage: 500 MG (5MG/KG) 6 WEEKS THEN EVERY 8 WEEKS
     Route: 042
     Dates: start: 20211015
  8. INFLECTRA [Suspect]
     Active Substance: INFLIXIMAB-DYYB
     Dosage: 5 MG/KG WEEK 6, THEN Q8WEEKS
     Route: 042
     Dates: start: 20211210
  9. INFLECTRA [Suspect]
     Active Substance: INFLIXIMAB-DYYB
     Dosage: 5 MG/KG WEEK 6, THEN Q8WEEKS
     Route: 042
     Dates: start: 20220223
  10. INFLECTRA [Suspect]
     Active Substance: INFLIXIMAB-DYYB
     Dosage: 5 MG/KG Q 8 WEEKS
     Route: 042
     Dates: start: 20220805
  11. INFLECTRA [Suspect]
     Active Substance: INFLIXIMAB-DYYB
     Dosage: 5 MG/KG Q 8 WEEKS
     Route: 042
     Dates: start: 20221017
  12. CALCIUM [Concomitant]
     Active Substance: CALCIUM
     Dosage: 1 DF, UNKNOWN DOSE, FREQUENCY
  13. ERGOCALCIFEROL [Concomitant]
     Active Substance: ERGOCALCIFEROL
     Dosage: 1 DF, UNKNOWN DOSE, FREQUENCY

REACTIONS (18)
  - Weight increased [Unknown]
  - Malaise [Unknown]
  - Pneumonia [Unknown]
  - Urinary tract disorder [Not Recovered/Not Resolved]
  - Weight decreased [Unknown]
  - Off label use [Unknown]
  - Inappropriate schedule of product administration [Unknown]
  - Incorrect dose administered [Unknown]
  - Intentional product use issue [Unknown]
  - Blood pressure fluctuation [Unknown]
  - Mobility decreased [Unknown]
  - Infusion site pain [Unknown]
  - Fatigue [Unknown]
  - Crying [Unknown]
  - Depressed mood [Not Recovered/Not Resolved]
  - Arthralgia [Not Recovered/Not Resolved]
  - Body temperature decreased [Unknown]
  - Hypertension [Not Recovered/Not Resolved]

NARRATIVE: CASE EVENT DATE: 20200101
